FAERS Safety Report 8436038-7 (Version None)
Quarter: 2012Q2

REPORT INFORMATION
  Report Type: 
  Country: None (occurrence: None)
  Receive Date: 20120614
  Receipt Date: 20120607
  Transmission Date: 20120825
  Serious: Yes (Death, Other)
  Sender: FDA-Public Use
  Company Number: JP-SANOFI-AVENTIS-2012SA041252

PATIENT
  Age: 83 Year
  Sex: Female
  Weight: 43 kg

DRUGS (9)
  1. ALDACTONE [Concomitant]
     Route: 048
  2. ZOSYN [Concomitant]
  3. SELBEX [Concomitant]
  4. LASIX [Concomitant]
     Route: 048
  5. RISPERDAL [Concomitant]
     Route: 048
  6. S. ADCHNON [Concomitant]
     Dosage: STRENGTH 30 MG
     Route: 048
  7. FAMOTIDINE [Concomitant]
  8. FERROUS CITRATE [Concomitant]
  9. ENOXAPARIN SODIUM [Suspect]
     Indication: FEMORAL NECK FRACTURE
     Route: 058
     Dates: start: 20120508, end: 20120519

REACTIONS (4)
  - HAEMATURIA [None]
  - DEATH [None]
  - WOUND HAEMORRHAGE [None]
  - MOUTH HAEMORRHAGE [None]
